FAERS Safety Report 17021005 (Version 3)
Quarter: 2020Q1

REPORT INFORMATION
  Report Type: Report from Study
  Country: US (occurrence: US)
  Receive Date: 20191112
  Receipt Date: 20200129
  Transmission Date: 20200409
  Serious: Yes (Death, Other)
  Sender: FDA-Public Use
  Company Number: PHHY2019US090838

PATIENT
  Age: 38 Year
  Sex: Female
  Weight: 114.7 kg

DRUGS (1)
  1. GILENYA [Suspect]
     Active Substance: FINGOLIMOD HYDROCHLORIDE
     Indication: MULTIPLE SCLEROSIS
     Dosage: 0.5 MG, QD
     Route: 048
     Dates: start: 20151002

REACTIONS (3)
  - Arterial injury [Fatal]
  - Road traffic accident [Unknown]
  - Exsanguination [Fatal]

NARRATIVE: CASE EVENT DATE: 20190330
